FAERS Safety Report 22283402 (Version 4)
Quarter: 2024Q3

REPORT INFORMATION
  Report Type: Report from Study
  Country: BR (occurrence: BR)
  Receive Date: 20230504
  Receipt Date: 20240924
  Transmission Date: 20241017
  Serious: Yes (Death, Other)
  Sender: NOVARTIS
  Company Number: BR-002147023-NVSC2023BR098647

PATIENT
  Age: 52 Year
  Sex: Female

DRUGS (2)
  1. KISQALI [Suspect]
     Active Substance: RIBOCICLIB
     Indication: Breast cancer metastatic
     Dosage: 600 MG, CYCLIC (3 TABLETS OF 200 MG) ONCE A DAY FROM DAY TO DAY 21 (28 DAY CYCLES)
     Route: 048
     Dates: start: 201809, end: 20230427
  2. LETROZOLE [Suspect]
     Active Substance: LETROZOLE
     Indication: Product used for unknown indication
     Dosage: UNK
     Route: 065
     Dates: end: 202304

REACTIONS (4)
  - Triple negative breast cancer [Fatal]
  - Second primary malignancy [Fatal]
  - Metastases to central nervous system [Fatal]
  - Breast cancer recurrent [Fatal]

NARRATIVE: CASE EVENT DATE: 20230401
